FAERS Safety Report 4457619-1 (Version None)
Quarter: 2004Q3

REPORT INFORMATION
  Report Type: 
  Country: None (occurrence: None)
  Receive Date: 20040922
  Receipt Date: 20040914
  Transmission Date: 20050211
  Serious: Yes (Other)
  Sender: FDA-Public Use
  Company Number: GBWYE044216SEP04

PATIENT
  Age: 20 Year
  Sex: Female

DRUGS (2)
  1. ADVIL [Suspect]
     Indication: ANALGESIC EFFECT
     Dosage: 100 MG 3X PER 1 DAY ORAL
     Route: 048
  2. PHENYTOIN SODIUM [Concomitant]

REACTIONS (3)
  - HAEMATEMESIS [None]
  - HAEMOPTYSIS [None]
  - UPPER GASTROINTESTINAL HAEMORRHAGE [None]
